FAERS Safety Report 17054221 (Version 3)
Quarter: 2020Q1

REPORT INFORMATION
  Report Type: Spontaneous
  Country: DE (occurrence: DE)
  Receive Date: 20191120
  Receipt Date: 20200206
  Transmission Date: 20200409
  Serious: Yes (Hospitalization, Other)
  Sender: FDA-Public Use
  Company Number: DE-MYLANLABS-2019M1111480

PATIENT
  Sex: Female
  Weight: 2.4 kg

DRUGS (5)
  1. LEVETIRACETAM. [Suspect]
     Active Substance: LEVETIRACETAM
     Indication: EPILEPSY
     Dosage: 1500 MILLIGRAM, QD
     Route: 064
     Dates: start: 20140402, end: 20141126
  2. CLOBAZAM. [Suspect]
     Active Substance: CLOBAZAM
     Indication: EPILEPSY
     Dosage: 40 MILLIGRAM, QD
     Route: 064
     Dates: start: 20140402, end: 20141126
  3. PHENYTOIN. [Suspect]
     Active Substance: PHENYTOIN
     Indication: EPILEPSY
     Dosage: 400 MILLIGRAM, QD
     Route: 064
     Dates: start: 20140402, end: 20141126
  4. VALPROIC ACID. [Suspect]
     Active Substance: VALPROIC ACID
     Indication: EPILEPSY
     Dosage: 500 MILLIGRAM, QD
     Route: 064
     Dates: start: 20140402, end: 20141126
  5. BETAMETHASONE. [Concomitant]
     Active Substance: BETAMETHASONE
     Indication: MATERNAL THERAPY TO ENHANCE FOETAL LUNG MATURITY
     Dosage: UNK
     Route: 064
     Dates: start: 2014, end: 2014

REACTIONS (7)
  - Respiratory disorder neonatal [Recovered/Resolved]
  - Foetal exposure during pregnancy [Recovered/Resolved]
  - Premature baby [Unknown]
  - Bradycardia neonatal [Recovered/Resolved]
  - Selective eating disorder [Recovered/Resolved]
  - Weight gain poor [Unknown]
  - Low birth weight baby [Unknown]

NARRATIVE: CASE EVENT DATE: 2014
